FAERS Safety Report 9812556 (Version 1)
Quarter: 2014Q1

REPORT INFORMATION
  Report Type: Spontaneous
  Country: GB (occurrence: GB)
  Receive Date: 20140113
  Receipt Date: 20140113
  Transmission Date: 20141002
  Serious: Yes (Hospitalization, Other)
  Sender: FDA-Public Use
  Company Number: GB-PAR PHARMACEUTICAL, INC-2014SCPR007859

PATIENT
  Sex: 0

DRUGS (3)
  1. CABERGOLINE [Suspect]
     Indication: PROLACTINOMA
     Dosage: UNK, UNKNOWN
     Route: 065
  2. CABERGOLINE [Suspect]
     Dosage: 0.5 MG, BIWEEKLY
     Route: 065
  3. HYDROCORTISONE [Concomitant]
     Indication: PROLACTINOMA
     Dosage: UNK, UNKNOWN
     Route: 065

REACTIONS (1)
  - Pituitary haemorrhage [Recovered/Resolved]
